FAERS Safety Report 8601836-3 (Version None)
Quarter: 2012Q3

REPORT INFORMATION
  Report Type: 
  Country: None (occurrence: None)
  Receive Date: 20120817
  Receipt Date: 20120601
  Transmission Date: 20120928
  Serious: Yes (Hospitalization)
  Sender: FDA-Public Use
  Company Number: US-BRISTOL-MYERS SQUIBB COMPANY-16560187

PATIENT
  Age: 66 Year
  Sex: Male
  Weight: 70 kg

DRUGS (2)
  1. TICAGRELOR [Concomitant]
     Indication: COAGULOPATHY
  2. SPRYCEL [Suspect]
     Indication: CHRONIC MYELOID LEUKAEMIA
     Dosage: REDUCED TO 80MG/D
     Route: 048
     Dates: start: 20120419, end: 20120503

REACTIONS (3)
  - PLEURAL EFFUSION [None]
  - INFECTION [None]
  - ANAEMIA [None]
